FAERS Safety Report 8037019-8 (Version None)
Quarter: 2011Q4

REPORT INFORMATION
  Report Type: 
  Country: None (occurrence: None)
  Receive Date: 20111202
  Receipt Date: 20100520
  Transmission Date: 20120403
  Serious: Yes (Life-Threatening, Hospitalization)
  Sender: FDA-Public Use
  Company Number: 2010SP028235

PATIENT
  Age: 20 Year
  Sex: Female
  Weight: 55.7924 kg

DRUGS (1)
  1. NUVARING [Suspect]
     Indication: CONTRACEPTION
     Dates: start: 20050803, end: 20070110

REACTIONS (5)
  - DEEP VEIN THROMBOSIS [None]
  - HEADACHE [None]
  - PULMONARY EMBOLISM [None]
  - MENSTRUAL DISCOMFORT [None]
  - MENTAL DISORDER [None]
